FAERS Safety Report 6981962-5 (Version None)
Quarter: 2010Q3

REPORT INFORMATION
  Report Type: 
  Country: None (occurrence: None)
  Receive Date: 20100914
  Receipt Date: 20091016
  Transmission Date: 20110219
  Serious: No
  Sender: FDA-Public Use
  Company Number: US-PFIZER INC-2009284984

PATIENT
  Sex: Female
  Weight: 80 kg

DRUGS (7)
  1. LYRICA [Suspect]
     Indication: ARTHRALGIA
     Dosage: 150 MG, 1X/DAY
     Route: 048
     Dates: start: 20091014
  2. LYRICA [Suspect]
     Indication: MYALGIA
  3. MIRAPEX [Concomitant]
     Indication: RESTLESS LEGS SYNDROME
     Dosage: 0.5 MG, 1X/DAY
     Route: 048
  4. EFFEXOR [Concomitant]
     Dosage: 75 MG, 2X/DAY
     Route: 048
  5. CAPTOPRIL [Concomitant]
     Indication: CARDIAC DISORDER
     Dosage: 1.25 MG, 1X/DAY
     Route: 048
  6. LEVOXYL [Concomitant]
     Indication: THYROID DISORDER
     Dosage: 50 UG, 1X/DAY
     Route: 048
  7. NEURONTIN [Concomitant]
     Dosage: 900 MG, 1X/DAY
     Route: 048

REACTIONS (4)
  - DISTURBANCE IN ATTENTION [None]
  - EMOTIONAL DISORDER [None]
  - VAGINAL HAEMORRHAGE [None]
  - VISION BLURRED [None]
